FAERS Safety Report 8321982-1 (Version None)
Quarter: 2012Q2

REPORT INFORMATION
  Report Type: 
  Country: None (occurrence: None)
  Receive Date: 20120430
  Receipt Date: 20120424
  Transmission Date: 20120825
  Serious: Yes (Hospitalization, Other)
  Sender: FDA-Public Use
  Company Number: US-PFIZER INC-2012053691

PATIENT
  Sex: Male
  Weight: 106 kg

DRUGS (6)
  1. COZAAR [Concomitant]
     Indication: HYPERTENSION
     Dosage: 100 MG, DAILY
  2. CHANTIX [Suspect]
     Dosage: 1 MG, 2X/DAY
     Route: 048
     Dates: start: 20120201, end: 20120301
  3. CHANTIX [Suspect]
     Indication: SMOKING CESSATION THERAPY
     Dosage: 0.5 MG, 2X/DAY
     Route: 048
     Dates: start: 20120201, end: 20120201
  4. DEPAKOTE [Concomitant]
     Dosage: 3000 MG, 1X/DAY
     Dates: start: 20111015
  5. SAPHRIS [Suspect]
     Dosage: 5 MG IN MORNING / 20 MG AT BED TIME
     Route: 060
     Dates: start: 20111015, end: 20120301
  6. OMEPRAZOLE [Concomitant]
     Indication: BLOOD CHOLESTEROL INCREASED
     Dosage: UNK

REACTIONS (9)
  - PARANOIA [None]
  - DEPRESSION [None]
  - MOOD ALTERED [None]
  - INSOMNIA [None]
  - EMOTIONAL DISORDER [None]
  - FEELING ABNORMAL [None]
  - MOOD SWINGS [None]
  - RESTLESSNESS [None]
  - CONFUSIONAL STATE [None]
